FAERS Safety Report 13255588 (Version 1)
Quarter: 2017Q1

REPORT INFORMATION
  Report Type: Spontaneous
  Country: US (occurrence: US)
  Receive Date: 20170221
  Receipt Date: 20170221
  Transmission Date: 20170428
  Serious: No
  Sender: FDA-Public Use
  Company Number: US-MYLANLABS-2017M1000970

PATIENT
  Age: 62 Year
  Sex: Male

DRUGS (1)
  1. OLMESARTAN MEDOXOMIL TABLETS [Suspect]
     Active Substance: OLMESARTAN MEDOXOMIL
     Indication: BLOOD PRESSURE MANAGEMENT
     Dosage: 20 MG, QD
     Route: 048
     Dates: start: 201612

REACTIONS (3)
  - Drug effect decreased [Not Recovered/Not Resolved]
  - Extra dose administered [None]
  - Product substitution issue [None]

NARRATIVE: CASE EVENT DATE: 201612
